FAERS Safety Report 7042226-7 (Version None)
Quarter: 2010Q4

REPORT INFORMATION
  Report Type: 
  Country: None (occurrence: None)
  Receive Date: 20101013
  Receipt Date: 20100929
  Transmission Date: 20110411
  Serious: Yes (Other)
  Sender: FDA-Public Use
  Company Number: DE-WATSON-2010-13338

PATIENT
  Age: 18 Year
  Sex: Male

DRUGS (1)
  1. RISPERDONE [Suspect]
     Indication: SCHIZOPHRENIA
     Dosage: UP TO 6 MG, DAILY

REACTIONS (3)
  - EXTRAPYRAMIDAL DISORDER [None]
  - HALLUCINATION, AUDITORY [None]
  - WITHDRAWAL SYNDROME [None]
